FAERS Safety Report 18377761 (Version 14)
Quarter: 2024Q4

REPORT INFORMATION
  Report Type: Report from Study
  Country: US (occurrence: US)
  Receive Date: 20201013
  Receipt Date: 20241218
  Transmission Date: 20250115
  Serious: Yes (Other)
  Sender: TAKEDA
  Company Number: US-SHIRE-US202033508

PATIENT
  Age: 13 Year
  Sex: Male

DRUGS (4)
  1. ADVATE [Suspect]
     Active Substance: ANTIHEMOPHILIC FACTOR, HUMAN RECOMBINANT
     Indication: Product used for unknown indication
     Dosage: 1500 INTERNATIONAL UNIT
  2. ADVATE [Suspect]
     Active Substance: ANTIHEMOPHILIC FACTOR, HUMAN RECOMBINANT
     Dosage: 3500 INTERNATIONAL UNIT
  3. ADVATE [Suspect]
     Active Substance: ANTIHEMOPHILIC FACTOR, HUMAN RECOMBINANT
     Dosage: 3500 INTERNATIONAL UNIT
  4. ADVATE [Suspect]
     Active Substance: ANTIHEMOPHILIC FACTOR, HUMAN RECOMBINANT
     Dosage: 3000 INTERNATIONAL UNIT

REACTIONS (6)
  - Haemarthrosis [Recovered/Resolved]
  - Contusion [Recovered/Resolved]
  - Mouth haemorrhage [Unknown]
  - Post procedural haemorrhage [Unknown]
  - Head injury [Unknown]
  - Eyelid injury [Unknown]

NARRATIVE: CASE EVENT DATE: 20200701
